FAERS Safety Report 9285440 (Version 1)
Quarter: 2013Q2

REPORT INFORMATION
  Report Type: Spontaneous
  Country: US (occurrence: US)
  Receive Date: 20130513
  Receipt Date: 20130513
  Transmission Date: 20140414
  Serious: No
  Sender: FDA-Public Use
  Company Number: US-PFIZER INC-2013143821

PATIENT
  Sex: Female
  Weight: 60.32 kg

DRUGS (3)
  1. TRAZODONE HCL [Suspect]
     Indication: SLEEP DISORDER
     Dosage: 200 MG, DAILY
  2. GEODON [Suspect]
     Indication: DEPRESSION
     Dosage: 60 MG, DAILY
     Route: 048
  3. GEODON [Suspect]
     Indication: BIPOLAR DISORDER

REACTIONS (3)
  - Somnambulism [Unknown]
  - Hyperphagia [Unknown]
  - Depressed mood [Unknown]
